FAERS Safety Report 17318029 (Version 3)
Quarter: 2020Q2

REPORT INFORMATION
  Report Type: Report from Study
  Country: US (occurrence: US)
  Receive Date: 20200124
  Receipt Date: 20200508
  Transmission Date: 20200713
  Serious: Yes (Death, Other)
  Sender: FDA-Public Use
  Company Number: US-ASTRAZENECA-2020SE11878

PATIENT
  Sex: Female
  Weight: 4.3 kg

DRUGS (4)
  1. SYNAGIS [Suspect]
     Active Substance: PALIVIZUMAB
     Indication: ATRIAL SEPTAL DEFECT
     Route: 030
     Dates: start: 20191203, end: 20200118
  2. SYNAGIS [Suspect]
     Active Substance: PALIVIZUMAB
     Indication: HEART DISEASE CONGENITAL
     Dosage: 15 MG
     Route: 030
     Dates: start: 20200103, end: 20200103
  3. SYNAGIS [Suspect]
     Active Substance: PALIVIZUMAB
     Indication: ATRIAL SEPTAL DEFECT
     Dosage: 15 MG
     Route: 030
     Dates: start: 20200103, end: 20200103
  4. SYNAGIS [Suspect]
     Active Substance: PALIVIZUMAB
     Indication: HEART DISEASE CONGENITAL
     Route: 030
     Dates: start: 20191203, end: 20200118

REACTIONS (2)
  - Pulmonary arterial hypertension [Unknown]
  - Cardiopulmonary failure [Fatal]
